FAERS Safety Report 4581111-7 (Version None)
Quarter: 2005Q1

REPORT INFORMATION
  Report Type: 
  Country: None (occurrence: None)
  Receive Date: 20050214
  Receipt Date: 20040809
  Transmission Date: 20050727
  Serious: No
  Sender: FDA-Public Use
  Company Number: US-GLAXOSMITHKLINE-A0521526A

PATIENT
  Age: 22 Year
  Sex: Female

DRUGS (5)
  1. LAMICTAL [Suspect]
     Indication: BIPOLAR DISORDER
     Route: 048
     Dates: start: 20040608
  2. REMERON [Concomitant]
     Dosage: 30MG PER DAY
     Dates: start: 20011101
  3. EFFEXOR [Concomitant]
     Dosage: 75MG PER DAY
     Dates: start: 20011201
  4. NEURONTIN [Concomitant]
     Dosage: 300MG PER DAY
     Dates: start: 20011201
  5. ORAL CONTRACEPTIVES [Concomitant]

REACTIONS (3)
  - MENSTRUATION IRREGULAR [None]
  - STOMATITIS [None]
  - VAGINAL MYCOSIS [None]
